FAERS Safety Report 8013715-3 (Version None)
Quarter: 2011Q4

REPORT INFORMATION
  Report Type: 
  Country: None (occurrence: None)
  Receive Date: 20111229
  Receipt Date: 20111216
  Transmission Date: 20120403
  Serious: Yes (Hospitalization)
  Sender: FDA-Public Use
  Company Number: US-ELI_LILLY_AND_COMPANY-US201102003187

PATIENT
  Sex: Female

DRUGS (23)
  1. SALSALATE [Concomitant]
  2. CALTRATE D                         /00944201/ [Concomitant]
  3. FOLIC ACID [Concomitant]
  4. ORPHENADRINE CITRATE [Concomitant]
  5. LIPITOR [Concomitant]
  6. METOPROLOL SUCCINATE [Concomitant]
  7. FLOVENT HFA [Concomitant]
  8. CENTRUM SILVER [Concomitant]
  9. LIDODERM [Concomitant]
  10. VITAMIN B NOS [Concomitant]
  11. PRAZOSIN HCL [Concomitant]
  12. FORTEO [Suspect]
     Dosage: 20 UG, DAILY (1/D)
  13. PATADAY [Concomitant]
     Indication: EYE DISORDER
  14. FISH OIL [Concomitant]
  15. FORTEO [Suspect]
     Indication: OSTEOPOROSIS
     Dosage: 20 UG, DAILY (1/D)
     Dates: start: 20101015
  16. PROAIR HFA [Concomitant]
  17. ZYRTEC [Concomitant]
  18. LUMIGAN [Concomitant]
     Indication: EYE DISORDER
  19. BENADRYL [Concomitant]
  20. FORTEO [Suspect]
     Dosage: 20 UG, QD
     Dates: end: 20111001
  21. NEXIUM [Concomitant]
  22. VITAMIN D [Concomitant]
  23. TYLENOL (CAPLET) [Concomitant]

REACTIONS (5)
  - CRYING [None]
  - PAIN IN EXTREMITY [None]
  - FALL [None]
  - BONE DENSITY DECREASED [None]
  - LIGAMENT INJURY [None]
